FAERS Safety Report 4708847-9 (Version None)
Quarter: 2005Q3

REPORT INFORMATION
  Report Type: 
  Country: None (occurrence: None)
  Receive Date: 20050705
  Receipt Date: 20050620
  Transmission Date: 20060218
  Serious: Yes (Death, Disabling, Other)
  Sender: FDA-Public Use
  Company Number: 2005FR-00044

PATIENT
  Age: 64 Year
  Sex: Female
  Weight: 8 kg

DRUGS (1)
  1. ACETAMINOPHEN [Suspect]
     Indication: NASOPHARYNGITIS
     Dosage: 2.55ML, 4XDAY, ORAL
     Route: 048
     Dates: start: 20040915, end: 20040919

REACTIONS (2)
  - DYSKINESIA [None]
  - DYSTONIA [None]
